FAERS Safety Report 5486037-2 (Version None)
Quarter: 2007Q4

REPORT INFORMATION
  Report Type: 
  Country: None (occurrence: None)
  Receive Date: 20071012
  Receipt Date: 20070910
  Transmission Date: 20080405
  Serious: No
  Sender: FDA-Public Use
  Company Number: 200718705GDDC

PATIENT
  Sex: Male

DRUGS (1)
  1. LEFLUNOMIDE [Suspect]

REACTIONS (3)
  - NO ADVERSE REACTION [None]
  - PREGNANCY [None]
  - TRANSMISSION OF DRUG VIA SEMEN [None]
